FAERS Safety Report 5456849-X (Version None)
Quarter: 2007Q3

REPORT INFORMATION
  Report Type: 
  Country: None (occurrence: None)
  Receive Date: 20070917
  Receipt Date: 20070917
  Transmission Date: 20080115
  Serious: No
  Sender: FDA-Public Use
  Company Number: None

PATIENT
  Age: 60 Year
  Sex: Male
  Weight: 99.7913 kg

DRUGS (4)
  1. TRAMADOL HYDROCHLORIDE [Suspect]
     Indication: INTERVERTEBRAL DISC INJURY
     Dosage: 1 TABLET TWICE DAILY
     Dates: start: 20030101
  2. TRAMADOL HYDROCHLORIDE [Suspect]
     Indication: SPINAL FRACTURE
     Dosage: 1 TABLET TWICE DAILY
     Dates: start: 20030101
  3. UROCIT-K [Concomitant]
  4. HYDROCHLOROTHIAZIDE [Concomitant]

REACTIONS (1)
  - TINNITUS [None]
